FAERS Safety Report 6825628-0 (Version None)
Quarter: 2010Q3

REPORT INFORMATION
  Report Type: 
  Country: None (occurrence: None)
  Receive Date: 20100708
  Receipt Date: 20080305
  Transmission Date: 20110219
  Serious: No
  Sender: FDA-Public Use
  Company Number: US-PFIZER INC-2006126489

PATIENT
  Age: 39 Year
  Sex: Female
  Weight: 48.99 kg

DRUGS (8)
  1. CHANTIX [Suspect]
     Indication: EX-TOBACCO USER
     Dates: start: 20061007
  2. VITAMINS [Concomitant]
  3. GARLIC [Concomitant]
  4. GINKO BILOBA [Concomitant]
  5. HERBAL PREPARATION [Concomitant]
  6. CRANBERRY [Concomitant]
  7. TYLENOL [Concomitant]
  8. ANTACID TAB [Concomitant]

REACTIONS (2)
  - FLATULENCE [None]
  - NAUSEA [None]
